FAERS Safety Report 7808467-3 (Version None)
Quarter: 2011Q4

REPORT INFORMATION
  Report Type: 
  Country: None (occurrence: None)
  Receive Date: 20111012
  Receipt Date: 20110930
  Transmission Date: 20120403
  Serious: Yes (Hospitalization)
  Sender: FDA-Public Use
  Company Number: US-BAYER-201041633NA

PATIENT
  Age: 20 Year
  Sex: Female

DRUGS (14)
  1. IBUPROFEN [Concomitant]
     Indication: HEADACHE
     Dosage: UNK UNK, QD, 1 PILL
     Route: 048
  2. MIDRIN [Concomitant]
     Indication: HEADACHE
     Dosage: AS NEEDED
  3. REGLAN [Concomitant]
     Dosage: AS NEEDED
  4. TYLENOL-500 [Concomitant]
     Indication: HEADACHE
     Dosage: UNK UNK, QD, 1 PILL
     Route: 048
  5. EFFEXOR XR [Concomitant]
     Indication: MIGRAINE
  6. DURADRIN [Concomitant]
     Indication: MIGRAINE
     Dosage: 1-2 PILLS
     Route: 048
  7. EFFEXOR XR [Concomitant]
     Indication: PANIC ATTACK
     Dosage: 75 MG, QD
     Route: 048
  8. COUMADIN [Concomitant]
     Dosage: 5 MG, UNK
     Route: 048
  9. YASMIN [Suspect]
     Indication: PRODUCT USED FOR UNKNOWN INDICATION
     Dosage: UNK UNK, UNK
     Route: 048
     Dates: start: 20061101, end: 20070401
  10. ZANAFLEX [Concomitant]
     Indication: MUSCLE TIGHTNESS
  11. DURADRIN [Concomitant]
     Indication: HEADACHE
  12. MAXALT [Concomitant]
     Indication: MIGRAINE
     Dosage: AS NEEDED
  13. LYRICA [Concomitant]
     Dosage: 50 MG, QD
  14. ALLEGRA [Concomitant]
     Indication: MULTIPLE ALLERGIES
     Dosage: UNK UNK, QD, I PILL
     Route: 048
     Dates: start: 20060101

REACTIONS (2)
  - DEEP VEIN THROMBOSIS [None]
  - PULMONARY EMBOLISM [None]
